FAERS Safety Report 9161351 (Version 1)
Quarter: 2013Q1

REPORT INFORMATION
  Report Type: Other
  Country: IT (occurrence: IT)
  Receive Date: 20130313
  Receipt Date: 20130313
  Transmission Date: 20140127
  Serious: Yes (Hospitalization)
  Sender: FDA-Public Use
  Company Number: IT-WATSON-2013-03710

PATIENT
  Age: 37 Year
  Sex: Female

DRUGS (5)
  1. MIRTAZAPINE (UNKNOWN) [Suspect]
     Indication: PERSONALITY DISORDER
     Dosage: 15 UNITS
     Route: 048
     Dates: start: 20130225, end: 20130225
  2. OLANZAPINE [Suspect]
     Indication: PERSONALITY DISORDER
     Dosage: 10 UNITS
     Route: 048
     Dates: start: 20130225, end: 20130225
  3. TEGRETOL [Suspect]
     Indication: PERSONALITY DISORDER
     Dosage: 6 UNITS
     Route: 048
     Dates: start: 20130225, end: 20130225
  4. RISPERDAL [Concomitant]
     Indication: AFFECTIVE DISORDER
     Dosage: UNK, UNKNOWN
     Route: 065
  5. AMISULPRIDE [Concomitant]
     Indication: AFFECTIVE DISORDER
     Dosage: UNK, UNKNOWN
     Route: 065

REACTIONS (5)
  - Confusional state [Recovered/Resolved]
  - Somnolence [Recovered/Resolved]
  - Intentional overdose [Recovered/Resolved]
  - Overdose [Recovered/Resolved]
  - Drug abuse [Unknown]
